FAERS Safety Report 5016771-X (Version None)
Quarter: 2006Q2

REPORT INFORMATION
  Report Type: 
  Country: None (occurrence: None)
  Receive Date: 20060419
  Receipt Date: 20051206
  Transmission Date: 20061013
  Serious: No
  Sender: FDA-Public Use
  Company Number: US200511001251

PATIENT
  Age: 57 Year
  Sex: Female
  Weight: 59.9 kg

DRUGS (4)
  1. ALIMTA [Suspect]
     Indication: NON-SMALL CELL LUNG CANCER STAGE IV
     Dosage: 760 MG
     Dates: start: 20040921
  2. TEMODAR [Concomitant]
  3. CYANOCOBALAMIN [Concomitant]
  4. FOLIC ACID [Concomitant]

REACTIONS (1)
  - ABDOMINAL PAIN [None]
